FAERS Safety Report 7999769-9 (Version None)
Quarter: 2011Q4

REPORT INFORMATION
  Report Type: 
  Country: None (occurrence: None)
  Receive Date: 20111222
  Receipt Date: 20111214
  Transmission Date: 20120403
  Serious: Yes (Hospitalization)
  Sender: FDA-Public Use
  Company Number: GB-BRISTOL-MYERS SQUIBB COMPANY-16214926

PATIENT
  Age: 66 Year
  Sex: Female
  Weight: 67 kg

DRUGS (5)
  1. MEMANTINE HCL [Suspect]
     Indication: DEMENTIA
     Route: 048
     Dates: end: 20111025
  2. RAMIPRIL [Suspect]
     Indication: BLOOD PRESSURE
     Dosage: IN THE MORNING.
     Route: 048
     Dates: end: 20111026
  3. AMLODIPINE [Suspect]
     Indication: BLOOD PRESSURE
     Dosage: IN THE MORNING.
     Route: 048
     Dates: end: 20111025
  4. LANSOPRAZOLE [Concomitant]
     Dosage: TAKEN IN THE MORNING ORODISPERSIBLE TAB
  5. PRAVASTATIN SODIUM [Suspect]
     Indication: BLOOD CHOLESTEROL
     Dosage: AT NIGHT.
     Route: 048
     Dates: end: 20111025

REACTIONS (4)
  - ABDOMINAL PAIN UPPER [None]
  - BLOOD AMYLASE INCREASED [None]
  - PANCREATITIS ACUTE [None]
  - COMA SCALE ABNORMAL [None]
